FAERS Safety Report 7026994-6 (Version None)
Quarter: 2010Q4

REPORT INFORMATION
  Report Type: 
  Country: None (occurrence: None)
  Receive Date: 20101004
  Receipt Date: 20100924
  Transmission Date: 20110411
  Serious: No
  Sender: FDA-Public Use
  Company Number: US-JNJFOC-20100908061

PATIENT
  Sex: Male
  Weight: 113.4 kg

DRUGS (8)
  1. DURAGESIC-100 [Suspect]
     Indication: PAIN IN EXTREMITY
     Route: 062
  2. DURAGESIC-100 [Suspect]
     Indication: LYMPHOEDEMA
     Route: 062
  3. UNSPECIFIED FENTANYL [Suspect]
     Indication: PAIN IN EXTREMITY
     Route: 062
  4. UNSPECIFIED FENTANYL [Suspect]
     Indication: LYMPHOEDEMA
     Route: 062
  5. DURAGESIC-100 [Suspect]
     Route: 062
  6. DURAGESIC-100 [Suspect]
     Route: 062
  7. ANTIBIOTIC [Concomitant]
     Indication: CELLULITIS
     Route: 065
  8. ANTIBIOTIC [Concomitant]
     Indication: SWELLING
     Route: 065

REACTIONS (3)
  - PAIN [None]
  - PRODUCT ADHESION ISSUE [None]
  - WRONG TECHNIQUE IN DRUG USAGE PROCESS [None]
